FAERS Safety Report 19359603 (Version 1)
Quarter: 2021Q2

REPORT INFORMATION
  Report Type: Spontaneous
  Country: US (occurrence: US)
  Receive Date: 20210602
  Receipt Date: 20210602
  Transmission Date: 20210717
  Serious: Yes (Other)
  Sender: FDA-Public Use
  Company Number: US-FRESENIUS KABI-FK202105563

PATIENT
  Age: 15 Year
  Sex: Female
  Weight: 53.1 kg

DRUGS (1)
  1. DIPHENHYDRAMINE INJECTION (MANUFACTURER UNKNOWN) [Suspect]
     Active Substance: DIPHENHYDRAMINE
     Indication: PRODUCT USED FOR UNKNOWN INDICATION
     Dosage: 1250 ?2500 MG
     Route: 065

REACTIONS (1)
  - Toxicity to various agents [Recovered/Resolved]
